FAERS Safety Report 24807994 (Version 1)
Quarter: 2025Q1

REPORT INFORMATION
  Report Type: Spontaneous
  Country: EG (occurrence: EG)
  Receive Date: 20250106
  Receipt Date: 20250106
  Transmission Date: 20250409
  Serious: Yes (Other)
  Sender: NOVO NORDISK
  Company Number: EG-NOVOPROD-1342886

PATIENT
  Sex: Female

DRUGS (1)
  1. INSULIN HUMAN [Suspect]
     Active Substance: INSULIN HUMAN
     Indication: Diabetes mellitus

REACTIONS (5)
  - Diabetic foot [Unknown]
  - Lower limb fracture [Unknown]
  - Onychoclasis [Unknown]
  - Injection site discolouration [Unknown]
  - Wrong technique in product usage process [Unknown]
